FAERS Safety Report 7462556-4 (Version None)
Quarter: 2011Q2

REPORT INFORMATION
  Report Type: 
  Country: None (occurrence: None)
  Receive Date: 20110506
  Receipt Date: 20110426
  Transmission Date: 20111010
  Serious: Yes (Hospitalization)
  Sender: FDA-Public Use
  Company Number: SG-SANOFI-AVENTIS-200312590GDDC

PATIENT
  Age: 76 Year
  Sex: Female

DRUGS (6)
  1. ZOCOR [Concomitant]
     Dates: start: 19980611
  2. INDAPAMIDE [Suspect]
     Indication: HYPERTENSION
     Dosage: DOSE UNIT: 1.5 MG
     Route: 048
     Dates: start: 20030205, end: 20030209
  3. PULMICORT [Concomitant]
     Indication: ASTHMA
     Dates: start: 19980611
  4. COVERSYL /FRA/ [Concomitant]
     Dates: start: 20020128
  5. ADALAT [Concomitant]
     Dates: start: 20030205
  6. CARDIPRIN [Concomitant]
     Dates: start: 20030127

REACTIONS (5)
  - CHEST DISCOMFORT [None]
  - BLOOD OSMOLARITY DECREASED [None]
  - HYPONATRAEMIA [None]
  - MUSCLE SPASMS [None]
  - HYPOKALAEMIA [None]
